FAERS Safety Report 18691517 (Version 2)
Quarter: 2021Q1

REPORT INFORMATION
  Report Type: Spontaneous
  Country: US (occurrence: US)
  Receive Date: 20210101
  Receipt Date: 20210223
  Transmission Date: 20210419
  Serious: Yes (Hospitalization, Other)
  Sender: FDA-Public Use
  Company Number: US-TEVA-2020-US-1864726

PATIENT
  Age: 68 Year
  Sex: Male
  Weight: 140 kg

DRUGS (27)
  1. VALSARTAN SOLCO [Suspect]
     Active Substance: VALSARTAN
     Indication: HYPERTENSION
     Dosage: DOSAGE: 320 MILLIGRAM
     Route: 065
     Dates: start: 20160722, end: 20160918
  2. ZOVIRAX [Concomitant]
     Active Substance: ACYCLOVIR
     Dosage: 400 MILLIGRAM DAILY;
     Route: 048
     Dates: start: 20190822
  3. NORVASC [Concomitant]
     Active Substance: AMLODIPINE BESYLATE
     Dosage: 10 MILLIGRAM DAILY;
     Route: 048
     Dates: start: 20190822
  4. VITAMIN B12 [Concomitant]
     Active Substance: CYANOCOBALAMIN
     Dosage: 1000 MICROGRAM DAILY;
     Route: 060
     Dates: start: 20191022
  5. LASIX [Concomitant]
     Active Substance: FUROSEMIDE
     Dosage: 40 MILLIGRAM DAILY;
     Route: 048
     Dates: start: 20200116
  6. VALSARTAN LUPIN [Suspect]
     Active Substance: VALSARTAN
     Indication: HYPERTENSION
     Dosage: DOSAGE: 320MILLIGRAM
     Route: 065
     Dates: start: 20150412, end: 20160106
  7. FERROUS SULFATE. [Concomitant]
     Active Substance: FERROUS SULFATE
     Dosage: DOSAGE: 85MILLIGRAM; (SLOW RELEASE IRON) 160 (50FE) MG
     Route: 048
  8. ELIQUIS [Concomitant]
     Active Substance: APIXABAN
     Dosage: 10 MILLIGRAM DAILY;
     Route: 048
     Dates: start: 20190603
  9. AMOXIL [Concomitant]
     Active Substance: AMOXICILLIN
     Dates: end: 20200203
  10. VALSARTAN TEVA [Suspect]
     Active Substance: VALSARTAN
     Indication: HYPERTENSION
     Dosage: DOSAGE: 320MILLIGRAM
     Route: 065
     Dates: start: 20130104, end: 20140830
  11. PANTOPRAZOLE [Concomitant]
     Active Substance: PANTOPRAZOLE
     Indication: GASTROINTESTINAL HAEMORRHAGE
  12. PROTONIX [Concomitant]
     Active Substance: PANTOPRAZOLE SODIUM
     Dosage: 40 MILLIGRAM DAILY;
     Route: 048
     Dates: start: 20190206
  13. ROXICODONE [Concomitant]
     Active Substance: OXYCODONE HYDROCHLORIDE
     Indication: PAIN
     Dosage: 15 MILLIGRAM DAILY; AS NEEDED
     Route: 048
     Dates: start: 20190603, end: 20200730
  14. LOSARTAN POTASSIUM. [Concomitant]
     Active Substance: LOSARTAN POTASSIUM
     Indication: HYPERTENSION
     Dosage: DOSAGE: 100 MILLIGRAM
     Route: 065
     Dates: start: 199907
  15. METOPROLOL SULPHATE [Concomitant]
     Indication: HYPERTENSION
  16. MELATONIN [Concomitant]
     Active Substance: MELATONIN
     Indication: INSOMNIA
     Dosage: 10MG AT BEDTIME AS NEEDED
     Route: 048
  17. HYDRODIURIL [Concomitant]
     Active Substance: HYDROCHLOROTHIAZIDE
     Dosage: 25 MILLIGRAM DAILY;
     Route: 048
     Dates: start: 20180113
  18. DIOVAN [Suspect]
     Active Substance: VALSARTAN
     Indication: HYPERTENSION
     Dosage: DOSAGE: 320MILLIGRAM
     Route: 065
  19. VALSARTAN TEVA [Suspect]
     Active Substance: VALSARTAN
     Dosage: DOSAGE: 320MILLIGRAM
     Route: 065
     Dates: start: 20160105, end: 20160724
  20. TYLENOL [Concomitant]
     Active Substance: ACETAMINOPHEN
     Indication: PAIN
     Dosage: TAKE 650MG BY MOUTH EVERY 4 HOURS AS NEEDED
     Route: 048
  21. COZAAR [Concomitant]
     Active Substance: LOSARTAN POTASSIUM
     Dosage: 100 MILLIGRAM DAILY;
     Route: 048
     Dates: start: 20190708
  22. HYPROMELLOSE [Concomitant]
     Active Substance: HYPROMELLOSES
     Indication: DRY EYE
     Dosage: 0.4 PERCENT ADMINISTER 1 DROP TO BOTH EYES AS NEEDED; NATURAL BALANCE TEARS
     Route: 047
     Dates: start: 20190812
  23. REVLIMID [Concomitant]
     Active Substance: LENALIDOMIDE
     Dosage: 10 MILLIGRAM DAILY;
     Route: 048
     Dates: start: 20200203
  24. VALSARTAN SANDOZ [Suspect]
     Active Substance: VALSARTAN
     Indication: HYPERTENSION
     Dosage: DOSAGE: 320MILLIGRAM
     Route: 065
     Dates: start: 20140929, end: 20150207
  25. AMLODIPINE [Concomitant]
     Active Substance: AMLODIPINE BESYLATE
  26. TYLENOL [Concomitant]
     Active Substance: ACETAMINOPHEN
     Indication: PYREXIA
  27. TOPROL XL [Concomitant]
     Active Substance: METOPROLOL SUCCINATE
     Dosage: 200 MILLIGRAM DAILY;
     Route: 048
     Dates: start: 20180813

REACTIONS (3)
  - Prostate cancer [Recovered/Resolved]
  - Plasma cell myeloma [Recovered/Resolved]
  - Skin cancer [Recovered/Resolved]
